FAERS Safety Report 6175730-4 (Version None)
Quarter: 2009Q2

REPORT INFORMATION
  Report Type: 
  Country: None (occurrence: None)
  Receive Date: 20090501
  Receipt Date: 20090419
  Transmission Date: 20091009
  Serious: Yes (Other)
  Sender: FDA-Public Use
  Company Number: US-PFIZER INC-2009203001

PATIENT
  Sex: Female
  Weight: 67.585 kg

DRUGS (3)
  1. CHANTIX [Suspect]
     Indication: SMOKING CESSATION THERAPY
     Dosage: UNK
  2. DRUG, UNSPECIFIED [Suspect]
     Dosage: UNK
  3. DRUG, UNSPECIFIED [Concomitant]
     Dosage: UNK

REACTIONS (1)
  - FALL [None]
